FAERS Safety Report 4413808-3 (Version None)
Quarter: 2004Q3

REPORT INFORMATION
  Report Type: 
  Country: None (occurrence: None)
  Receive Date: 20040728
  Receipt Date: 20040707
  Transmission Date: 20050211
  Serious: Yes (Other)
  Sender: FDA-Public Use
  Company Number: US_0404102018

PATIENT
  Age: 68 Year
  Sex: Female

DRUGS (2)
  1. EVISTA [Suspect]
     Indication: OSTEOPOROSIS
     Dosage: 60 MG DAY
  2. HORMONE REPLACEMENT THERAPY [Concomitant]

REACTIONS (3)
  - BONE DENSITY DECREASED [None]
  - DRUG INEFFECTIVE [None]
  - MULTIPLE FRACTURES [None]
